FAERS Safety Report 21754339 (Version 1)
Quarter: 2022Q4

REPORT INFORMATION
  Report Type: Spontaneous
  Country: KR (occurrence: KR)
  Receive Date: 20221220
  Receipt Date: 20221220
  Transmission Date: 20230112
  Serious: Yes (Death)
  Sender: FDA-Public Use
  Company Number: KR-ELI_LILLY_AND_COMPANY-KR202212009087

PATIENT
  Age: 59 Year
  Sex: Male

DRUGS (1)
  1. CYRAMZA [Suspect]
     Active Substance: RAMUCIRUMAB
     Indication: Product used for unknown indication
     Dosage: 700 MG, UNKNOWN
     Route: 042
     Dates: start: 20221110, end: 20221110

REACTIONS (1)
  - Death [Fatal]

NARRATIVE: CASE EVENT DATE: 20221208
